FAERS Safety Report 18428994 (Version 1)
Quarter: 2020Q4

REPORT INFORMATION
  Report Type: Spontaneous
  Country: US (occurrence: US)
  Receive Date: 20201027
  Receipt Date: 20201027
  Transmission Date: 20210114
  Serious: No
  Sender: FDA-Public Use
  Company Number: US-ASTRAZENECA-2020SF37769

PATIENT
  Sex: Male
  Weight: 97.5 kg

DRUGS (2)
  1. SYNTHROID [Concomitant]
     Active Substance: LEVOTHYROXINE SODIUM
     Indication: THYROID DISORDER
  2. SYMBICORT [Suspect]
     Active Substance: BUDESONIDE\FORMOTEROL FUMARATE DIHYDRATE
     Indication: ASTHMA
     Dosage: 160/4.5 MCG., 2 PUFFS TWICE A DAY
     Route: 055
     Dates: start: 202001

REACTIONS (2)
  - Asthma [Not Recovered/Not Resolved]
  - Product dose omission issue [Not Recovered/Not Resolved]
